FAERS Safety Report 22051912 (Version 9)
Quarter: 2023Q4

REPORT INFORMATION
  Report Type: Spontaneous
  Country: US (occurrence: US)
  Receive Date: 20230302
  Receipt Date: 20231122
  Transmission Date: 20240110
  Serious: Yes (Death, Life-Threatening, Hospitalization, Other)
  Sender: FDA-Public Use
  Company Number: US-Hikma Pharmaceuticals USA Inc.-US-H14001-23-00576

PATIENT
  Age: 69 Year
  Sex: Female
  Weight: 64 kg

DRUGS (76)
  1. BEVACIZUMAB [Suspect]
     Active Substance: BEVACIZUMAB
     Dosage: 300 MILLIGRAM, SINGLE
     Route: 042
     Dates: start: 20221019, end: 20221019
  2. BEVACIZUMAB [Suspect]
     Active Substance: BEVACIZUMAB
     Dosage: 300 MILLIGRAM, SINGLE
     Route: 042
     Dates: start: 20221109, end: 20221109
  3. BEVACIZUMAB [Suspect]
     Active Substance: BEVACIZUMAB
     Dosage: 300 MILLIGRAM, SINGLE
     Route: 042
     Dates: start: 20221130, end: 20221130
  4. BEVACIZUMAB [Suspect]
     Active Substance: BEVACIZUMAB
     Dosage: 300 MILLIGRAM, SINGLE
     Route: 042
     Dates: start: 20221214, end: 20221214
  5. BEVACIZUMAB [Suspect]
     Active Substance: BEVACIZUMAB
     Dosage: 300 MILLIGRAM, SINGLE
     Route: 042
     Dates: start: 20221228, end: 20221228
  6. BEVACIZUMAB [Suspect]
     Active Substance: BEVACIZUMAB
     Dosage: 300 MILLIGRAM, SINGLE
     Route: 042
     Dates: start: 20230111, end: 20230111
  7. BEVACIZUMAB [Suspect]
     Active Substance: BEVACIZUMAB
     Indication: Colorectal cancer
     Dosage: 317 MILLIGRAM, SINGLE
     Route: 042
     Dates: start: 20220831, end: 20220831
  8. BEVACIZUMAB [Suspect]
     Active Substance: BEVACIZUMAB
     Dosage: 317 MILLIGRAM, SINGLE
     Route: 042
     Dates: start: 20220929, end: 20220929
  9. ETRUMADENANT [Suspect]
     Active Substance: ETRUMADENANT
     Indication: Colorectal cancer
     Dosage: 150 MILLIGRAM
     Route: 048
     Dates: start: 20220831
  10. ETRUMADENANT [Suspect]
     Active Substance: ETRUMADENANT
     Dosage: 150 MILLIGRAM
     Route: 048
     Dates: start: 20221019, end: 20221123
  11. ETRUMADENANT [Suspect]
     Active Substance: ETRUMADENANT
     Dosage: 150 MILLIGRAM
     Route: 048
     Dates: start: 20221202, end: 20221227
  12. ETRUMADENANT [Suspect]
     Active Substance: ETRUMADENANT
     Dosage: 150 MILLIGRAM
     Route: 048
     Dates: start: 20230112, end: 20230124
  13. FLUOROURACIL [Suspect]
     Active Substance: FLUOROURACIL
     Dosage: 1600 MILLIGRAM
     Route: 042
     Dates: start: 20221109, end: 20221109
  14. FLUOROURACIL [Suspect]
     Active Substance: FLUOROURACIL
     Dosage: 1600 MILLIGRAM
     Route: 042
     Dates: start: 20221130, end: 20221130
  15. FLUOROURACIL [Suspect]
     Active Substance: FLUOROURACIL
     Dosage: 1600 MILLIGRAM
     Route: 042
     Dates: start: 20221214, end: 20221214
  16. FLUOROURACIL [Suspect]
     Active Substance: FLUOROURACIL
     Dosage: 1600 MILLIGRAM
     Route: 042
     Dates: start: 20221228, end: 20221228
  17. FLUOROURACIL [Suspect]
     Active Substance: FLUOROURACIL
     Dosage: 1600 MILLIGRAM
     Route: 042
     Dates: start: 20230111, end: 20230111
  18. FLUOROURACIL [Suspect]
     Active Substance: FLUOROURACIL
     Dosage: 2400 MILLIGRAM
     Route: 042
     Dates: start: 20221019, end: 20221019
  19. FLUOROURACIL [Suspect]
     Active Substance: FLUOROURACIL
     Dosage: 265 MILLIGRAM
     Route: 042
     Dates: start: 20221109, end: 20221109
  20. FLUOROURACIL [Suspect]
     Active Substance: FLUOROURACIL
     Dosage: 3187 MILLIGRAM
     Route: 042
     Dates: start: 20220929, end: 20220929
  21. FLUOROURACIL [Suspect]
     Active Substance: FLUOROURACIL
     Dosage: 3984 MILLIGRAM
     Route: 042
     Dates: start: 20220831, end: 20220831
  22. FLUOROURACIL [Suspect]
     Active Substance: FLUOROURACIL
     Dosage: 400 MILLIGRAM
     Route: 042
     Dates: start: 20221019, end: 20221019
  23. FLUOROURACIL [Suspect]
     Active Substance: FLUOROURACIL
     Dosage: 531 MILLIGRAM
     Route: 042
     Dates: start: 20220929, end: 20220929
  24. FLUOROURACIL [Suspect]
     Active Substance: FLUOROURACIL
     Indication: Colorectal cancer
     Dosage: 664 MILLIGRAM
     Route: 042
     Dates: start: 20220831, end: 20220831
  25. LEUCOVORIN [Suspect]
     Active Substance: LEUCOVORIN\LEUCOVORIN CALCIUM
     Indication: Product used for unknown indication
     Dosage: 400 MILLIGRAM, SINGLE
     Route: 042
     Dates: start: 20220831, end: 20220831
  26. LEUCOVORIN [Suspect]
     Active Substance: LEUCOVORIN\LEUCOVORIN CALCIUM
     Dosage: 99 MILLIGRAM, SINGLE
     Route: 042
     Dates: start: 20220929, end: 20220929
  27. LEUCOVORIN [Suspect]
     Active Substance: LEUCOVORIN\LEUCOVORIN CALCIUM
     Dosage: 99 MILLIGRAM, SINGLE
     Route: 042
     Dates: start: 20221019, end: 20221019
  28. LEUCOVORIN [Suspect]
     Active Substance: LEUCOVORIN\LEUCOVORIN CALCIUM
     Dosage: 99 MILLIGRAM, SINGLE
     Route: 042
     Dates: start: 20221109, end: 20221109
  29. LEUCOVORIN [Suspect]
     Active Substance: LEUCOVORIN\LEUCOVORIN CALCIUM
     Dosage: UNK
     Route: 042
     Dates: end: 20221130
  30. OXALIPLATIN [Suspect]
     Active Substance: OXALIPLATIN
     Dosage: 112 MILLIGRAM
     Route: 042
     Dates: start: 20220929, end: 20220929
  31. OXALIPLATIN [Suspect]
     Active Substance: OXALIPLATIN
     Indication: Colorectal cancer
     Dosage: 141 MILLIGRAM
     Route: 042
     Dates: start: 20220831, end: 20220831
  32. OXALIPLATIN [Suspect]
     Active Substance: OXALIPLATIN
     Dosage: 57.5 MILLIGRAM
     Route: 042
     Dates: start: 20221109, end: 20221109
  33. OXALIPLATIN [Suspect]
     Active Substance: OXALIPLATIN
     Dosage: 57.5 MILLIGRAM
     Route: 042
     Dates: start: 20221130, end: 20221130
  34. OXALIPLATIN [Suspect]
     Active Substance: OXALIPLATIN
     Dosage: 57.5 MILLIGRAM
     Route: 042
     Dates: start: 20221214, end: 20221214
  35. OXALIPLATIN [Suspect]
     Active Substance: OXALIPLATIN
     Dosage: 57.5 MILLIGRAM
     Route: 042
     Dates: start: 20221228, end: 20221228
  36. OXALIPLATIN [Suspect]
     Active Substance: OXALIPLATIN
     Dosage: 57.5 MILLIGRAM
     Route: 042
     Dates: start: 20230111, end: 20230111
  37. OXALIPLATIN [Suspect]
     Active Substance: OXALIPLATIN
     Dosage: 85 MILLIGRAM
     Route: 042
     Dates: start: 20221019, end: 20221019
  38. ZIMBERELIMAB [Suspect]
     Active Substance: ZIMBERELIMAB
     Indication: Colorectal cancer
     Dosage: 480 MILLIGRAM
     Route: 042
     Dates: start: 20220831, end: 20220831
  39. ZIMBERELIMAB [Suspect]
     Active Substance: ZIMBERELIMAB
     Dosage: 480 MILLIGRAM
     Route: 042
     Dates: start: 20221019, end: 20221019
  40. ZIMBERELIMAB [Suspect]
     Active Substance: ZIMBERELIMAB
     Dosage: 480 MILLIGRAM
     Route: 042
     Dates: start: 20221130, end: 20221130
  41. ZIMBERELIMAB [Suspect]
     Active Substance: ZIMBERELIMAB
     Dosage: 480 MILLIGRAM
     Route: 042
     Dates: start: 20221228
  42. ADDERALL [Concomitant]
     Active Substance: AMPHETAMINE ASPARTATE\AMPHETAMINE SULFATE\DEXTROAMPHETAMINE SACCHARATE\DEXTROAMPHETAMINE SULFATE
     Indication: Attention deficit hyperactivity disorder
     Dosage: 10 MILLIGRAM, BID
     Route: 048
     Dates: start: 20220831
  43. AMCAL PROCHLORPERAZINE [Concomitant]
     Indication: Product used for unknown indication
     Dosage: UNK
     Dates: start: 20220908
  44. ATIVAN [Concomitant]
     Active Substance: LORAZEPAM
     Indication: Anxiety
     Dosage: 0.5 MILLIGRAM, QD, PRN
     Route: 048
     Dates: start: 20220311
  45. ATIVAN [Concomitant]
     Active Substance: LORAZEPAM
     Indication: Nausea
     Dosage: 0.5 MILLIGRAM, SINGLE
     Route: 042
     Dates: start: 20220901, end: 20220901
  46. ATIVAN [Concomitant]
     Active Substance: LORAZEPAM
     Indication: Vomiting
  47. ATIVAN [Concomitant]
     Active Substance: LORAZEPAM
     Indication: Nausea
  48. ATIVAN [Concomitant]
     Active Substance: LORAZEPAM
     Indication: Vomiting
  49. BENADRYL [Concomitant]
     Active Substance: DIPHENHYDRAMINE HYDROCHLORIDE
     Indication: Pyrexia
     Dosage: UNKNOWN
     Route: 065
  50. BENADRYL [Concomitant]
     Active Substance: DIPHENHYDRAMINE HYDROCHLORIDE
     Indication: Pyrexia
     Dosage: UNKNOWN
     Route: 065
  51. LORATADINE [Concomitant]
     Active Substance: LORATADINE
     Indication: Hypersensitivity
     Dosage: 10 MILLIGRAM, QD
     Route: 048
     Dates: start: 20211114
  52. COLESTID [Concomitant]
     Active Substance: COLESTIPOL HYDROCHLORIDE
     Indication: Blood cholesterol
     Dosage: 1 DOSAGE FORM, TID, PRN
     Route: 048
     Dates: start: 20220718
  53. PROCHLORPERAZINE EDISYLATE [Concomitant]
     Active Substance: PROCHLORPERAZINE EDISYLATE
     Indication: Prophylaxis of nausea and vomiting
     Dosage: 10 MILLIGRAM, Q6H, PRN
     Route: 048
     Dates: start: 20230908
  54. COMPAZINE [Concomitant]
     Active Substance: PROCHLORPERAZINE MALEATE
     Indication: Nausea
     Dosage: 5 MILLIGRAM, SINGLE
     Route: 042
     Dates: start: 20220901, end: 20220901
  55. COMPAZINE [Concomitant]
     Active Substance: PROCHLORPERAZINE MALEATE
     Indication: Vomiting
  56. DEXAMETHASONE [Concomitant]
     Active Substance: DEXAMETHASONE
     Indication: Prophylaxis of nausea and vomiting
     Dosage: 12 MILLIGRAM, PRN
     Route: 048
     Dates: start: 20220727
  57. GABAPENTIN [Concomitant]
     Active Substance: GABAPENTIN
     Indication: Product used for unknown indication
     Dosage: UNK
     Dates: start: 20171101
  58. GRANIX [Concomitant]
     Active Substance: TBO-FILGRASTIM
     Indication: Febrile neutropenia
     Dosage: 300 MICROGRAM, SINGLE
     Route: 058
     Dates: start: 20221003, end: 20221102
  59. IBUPROFEN [Concomitant]
     Active Substance: IBUPROFEN
     Indication: Pain
     Dosage: 400 MILLIGRAM, PRN
     Route: 048
  60. IMODIUM AD [Concomitant]
     Active Substance: LOPERAMIDE HYDROCHLORIDE
     Indication: Diarrhoea
     Dosage: 2 MILLIGRAM, PRN
     Route: 048
     Dates: start: 20220315
  61. LEVOTHYROXINE [Concomitant]
     Active Substance: LEVOTHYROXINE
     Dosage: 100 MICROGRAM, QD
     Route: 048
     Dates: start: 20230111
  62. LEVOTHYROXINE [Concomitant]
     Active Substance: LEVOTHYROXINE
     Indication: Hypothyroidism
     Dosage: 50 MICROGRAM, QD
     Route: 048
     Dates: start: 20170913, end: 20220907
  63. LEVOTHYROXINE [Concomitant]
     Active Substance: LEVOTHYROXINE
     Dosage: 75 MICROGRAM, QD
     Route: 048
     Dates: start: 20220907, end: 20230111
  64. LOMOTIL [Concomitant]
     Active Substance: ATROPINE SULFATE\DIPHENOXYLATE HYDROCHLORIDE
     Indication: Diarrhoea
     Dosage: 1 DOSAGE FORM, QID, PRN
     Route: 048
     Dates: start: 20220901
  65. LOPERAMIDE HYDROCHLORIDE [Concomitant]
     Active Substance: LOPERAMIDE HYDROCHLORIDE
     Indication: Product used for unknown indication
     Dosage: UNKNOWN
     Route: 065
     Dates: start: 20220901
  66. LOPERAMIDE DOC [Concomitant]
     Indication: Product used for unknown indication
     Dosage: UNKNOWN
     Route: 065
     Dates: start: 20220315
  67. LORATADINE HYDROCHLORIDE [Concomitant]
     Indication: Product used for unknown indication
     Dosage: UNKNOWN
     Route: 065
     Dates: start: 20211114
  68. MS CONTIN DAINIPPO [Concomitant]
     Indication: Pain
     Dosage: 100 MILLIGRAM, BID
     Route: 048
     Dates: start: 20220926
  69. NEULASTA [Concomitant]
     Active Substance: PEGFILGRASTIM
     Indication: Febrile neutropenia
     Dosage: 6 MILLIGRAM, SINGLE
     Route: 058
     Dates: start: 20221102, end: 20221230
  70. NEULASTA [Concomitant]
     Active Substance: PEGFILGRASTIM
     Indication: Neutrophil count decreased
  71. NEURONTIN [Concomitant]
     Active Substance: GABAPENTIN
     Indication: Cancer pain
     Dosage: 800 MILLIGRAM, PRN, Q6H
     Route: 048
     Dates: start: 20221101
  72. PERCOCET [Concomitant]
     Active Substance: ACETAMINOPHEN\OXYCODONE HYDROCHLORIDE
     Indication: Cancer pain
     Dosage: 1 DOSAGE FORM, QID, PRN
     Route: 048
     Dates: start: 20220311
  73. POTASSIUM CHLORIDE\RIBOFLAVIN 5^-PHOSPHATE SODIUM [Concomitant]
     Active Substance: POTASSIUM CHLORIDE\RIBOFLAVIN 5^-PHOSPHATE SODIUM
     Indication: Hypokalaemia
     Dosage: 20 MILLIEQUIVALENT, QD
     Route: 048
     Dates: start: 20220621
  74. PROTONIX [Concomitant]
     Active Substance: PANTOPRAZOLE SODIUM
     Indication: Nausea
     Dosage: 40 MILLIGRAM, BID
     Route: 048
     Dates: start: 20220311
  75. XYLOCAINE [Concomitant]
     Active Substance: LIDOCAINE HYDROCHLORIDE
     Indication: Oropharyngeal pain
     Dosage: 100 MILLILITER, PRN
     Route: 048
     Dates: start: 20230119
  76. ZYPREXA [Concomitant]
     Active Substance: OLANZAPINE
     Indication: Depression
     Dosage: 10 MILLIGRAM, QD
     Route: 048
     Dates: start: 20220727

REACTIONS (12)
  - Asthenia [Recovered/Resolved]
  - Febrile neutropenia [Recovered/Resolved]
  - Somnolence [Recovered/Resolved]
  - Hyponatraemia [Recovered/Resolved]
  - Immunodeficiency [Unknown]
  - Colon cancer metastatic [Fatal]
  - Dehydration [Recovered/Resolved]
  - Lactic acidosis [Recovered/Resolved]
  - Muscular weakness [Recovered/Resolved]
  - Pneumonitis [Recovered/Resolved]
  - Leukopenia [Recovered/Resolved]
  - Diarrhoea [Recovered/Resolved]

NARRATIVE: CASE EVENT DATE: 20220914
